FAERS Safety Report 6850653-3 (Version None)
Quarter: 2010Q3

REPORT INFORMATION
  Report Type: 
  Country: None (occurrence: None)
  Receive Date: 20100716
  Receipt Date: 20071019
  Transmission Date: 20110219
  Serious: No
  Sender: FDA-Public Use
  Company Number: US-PFIZER INC-2007089991

PATIENT
  Sex: Male
  Weight: 108 kg

DRUGS (8)
  1. CHANTIX [Suspect]
     Indication: SMOKING CESSATION THERAPY
     Route: 048
     Dates: start: 20070301
  2. PRAVASTATIN [Concomitant]
  3. ACETYLSALICYLIC ACID [Concomitant]
  4. TOPROL-XL [Concomitant]
  5. FELODIPINE [Concomitant]
  6. DRUG, UNSPECIFIED [Concomitant]
  7. NIASPAN [Concomitant]
  8. PLAVIX [Concomitant]

REACTIONS (1)
  - FATIGUE [None]
